FAERS Safety Report 9678202 (Version 1)
Quarter: 2013Q4

REPORT INFORMATION
  Report Type: Spontaneous
  Country: US (occurrence: US)
  Receive Date: 20131108
  Receipt Date: 20131108
  Transmission Date: 20140711
  Serious: No
  Sender: FDA-Public Use
  Company Number: US-UPSHER-SMITH LABORATORIES, INC.-13000293

PATIENT
  Age: 40 Year
  Sex: Female

DRUGS (7)
  1. JANTOVEN [Suspect]
     Indication: MYOCARDIAL INFARCTION
     Dosage: 3 MG, QD
     Route: 048
     Dates: start: 20121231
  2. METOPROLOL [Concomitant]
     Dosage: UNK
  3. ZOCOR [Concomitant]
     Dosage: UNK
  4. PEPCID                             /00706001/ [Concomitant]
     Dosage: UNK
  5. CELEXA                             /00582602/ [Concomitant]
     Dosage: UNK
  6. NORCO [Concomitant]
     Dosage: UNK
  7. FOLIC ACID [Concomitant]
     Dosage: UNK

REACTIONS (1)
  - International normalised ratio decreased [Unknown]
